FAERS Safety Report 17541642 (Version 2)
Quarter: 2020Q2

REPORT INFORMATION
  Report Type: Report from Study
  Country: PK (occurrence: PK)
  Receive Date: 20200313
  Receipt Date: 20200407
  Transmission Date: 20200713
  Serious: Yes (Hospitalization, Other)
  Sender: FDA-Public Use
  Company Number: NVSC2020PK069062

PATIENT
  Age: 59 Year
  Sex: Female

DRUGS (2)
  1. MYFORTIC [Suspect]
     Active Substance: MYCOPHENOLATE SODIUM
     Indication: LYMPHANGIOSIS CARCINOMATOSA
     Dosage: 360 MG, BID
     Route: 048
     Dates: start: 20190221, end: 20200227
  2. SANDIMMUN NEORAL [Suspect]
     Active Substance: CYCLOSPORINE
     Indication: LYMPHANGIOSIS CARCINOMATOSA
     Dosage: 25 MG, BID
     Route: 048
     Dates: start: 20190221, end: 20200227

REACTIONS (12)
  - Urine output decreased [Unknown]
  - Fatigue [Unknown]
  - Malaise [Unknown]
  - Dyspnoea [Recovered/Resolved]
  - Infection [Unknown]
  - Product use in unapproved indication [Unknown]
  - Lymphangiosis carcinomatosa [Recovered/Resolved]
  - Malignant neoplasm progression [Recovered/Resolved]
  - Chest discomfort [Unknown]
  - Costovertebral angle tenderness [Unknown]
  - Blood creatinine increased [Recovered/Resolved]
  - Flank pain [Unknown]

NARRATIVE: CASE EVENT DATE: 20200219
